FAERS Safety Report 9524822 (Version 1)
Quarter: 2013Q3

REPORT INFORMATION
  Report Type: Spontaneous
  Country: FR (occurrence: FR)
  Receive Date: 20130916
  Receipt Date: 20130916
  Transmission Date: 20140515
  Serious: Yes (Other)
  Sender: FDA-Public Use
  Company Number: FR-PFIZER INC-2013259420

PATIENT
  Age: 51 Year
  Sex: Female
  Weight: 50 kg

DRUGS (10)
  1. SOLU-MEDROL [Suspect]
     Indication: MULTIPLE SCLEROSIS
     Dosage: 1 G DAILY
     Route: 040
     Dates: start: 20130710, end: 20130712
  2. LYRICA [Suspect]
     Dosage: 100 MG, 2X/DAY
     Route: 048
  3. OXYCONTIN [Suspect]
     Route: 048
  4. OXYNORM [Suspect]
     Dosage: 4 TIMES DAILY
     Route: 048
  5. DIFFU K [Suspect]
     Dosage: 2X/DAY
     Route: 048
  6. INEXIUM [Suspect]
     Dosage: 20 MG, 1X/DAY
     Route: 048
  7. INEXIUM [Suspect]
     Dosage: 40 MG DAILY
     Dates: start: 20130712, end: 20130712
  8. VENOFER [Suspect]
     Indication: SERUM FERRITIN DECREASED
     Dosage: 3 DF DAILY
     Route: 041
     Dates: start: 20130710, end: 20130711
  9. CACIT D3 [Suspect]
     Route: 048
  10. LIORESAL [Suspect]
     Indication: MULTIPLE SCLEROSIS
     Dosage: 10 MG, 1X/DAY
     Route: 048

REACTIONS (4)
  - Incorrect drug administration rate [Unknown]
  - Electrocardiogram ST segment depression [Recovered/Resolved]
  - Chest pain [Recovered/Resolved]
  - Pain in jaw [Recovered/Resolved]
